FAERS Safety Report 23257189 (Version 1)
Quarter: 2023Q4

REPORT INFORMATION
  Report Type: Spontaneous
  Country: US (occurrence: US)
  Receive Date: 20231204
  Receipt Date: 20231204
  Transmission Date: 20240109
  Serious: Yes (Hospitalization, Other)
  Sender: FDA-Public Use
  Company Number: US-ELI_LILLY_AND_COMPANY-US202311012133

PATIENT
  Sex: Female

DRUGS (5)
  1. CYMBALTA [Suspect]
     Active Substance: DULOXETINE HYDROCHLORIDE
     Indication: Lyme disease
     Dosage: 40 MG, DAILY
     Route: 048
     Dates: start: 2004
  2. CYMBALTA [Suspect]
     Active Substance: DULOXETINE HYDROCHLORIDE
     Indication: Pain
     Dosage: 20 MG, DAILY
     Route: 065
  3. CYMBALTA [Suspect]
     Active Substance: DULOXETINE HYDROCHLORIDE
     Dosage: 20 MG, DAILY
     Route: 065
  4. DULOXETINE HYDROCHLORIDE [Suspect]
     Active Substance: DULOXETINE HYDROCHLORIDE
     Indication: Lyme disease
     Dosage: UNK UNK, UNKNOWN
     Route: 048
  5. DULOXETINE HYDROCHLORIDE [Suspect]
     Active Substance: DULOXETINE HYDROCHLORIDE
     Indication: Pain

REACTIONS (10)
  - Hernia [Unknown]
  - Suicidal ideation [Unknown]
  - Pain [Unknown]
  - Off label use [Unknown]
  - Drug withdrawal syndrome [Unknown]
  - Influenza [Unknown]
  - Anxiety [Unknown]
  - Bone pain [Unknown]
  - Tinnitus [Unknown]
  - Nervousness [Unknown]

NARRATIVE: CASE EVENT DATE: 20040101
